FAERS Safety Report 8601048-3 (Version None)
Quarter: 2012Q2

REPORT INFORMATION
  Report Type: 
  Country: None (occurrence: None)
  Receive Date: 20120423
  Receipt Date: 20100310
  Transmission Date: 20120825
  Serious: Yes (Other)
  Sender: FDA-Public Use
  Company Number: PHEH2010US02738

PATIENT
  Age: 73 Year
  Sex: Female
  Weight: 43 kg

DRUGS (3)
  1. FEMARA [Suspect]
     Indication: BREAST CANCER
     Dosage: 2.5 MG, QD, ORAL
     Route: 048
     Dates: start: 20070128, end: 20100301
  2. HYDROCHLOROTHIAZIDE [Concomitant]
  3. ASPIRIN [Concomitant]

REACTIONS (4)
  - TUMOUR MARKER INCREASED [None]
  - NEOPLASM MALIGNANT [None]
  - NO THERAPEUTIC RESPONSE [None]
  - METASTASES TO BONE [None]
